FAERS Safety Report 7496876-4 (Version None)
Quarter: 2011Q2

REPORT INFORMATION
  Report Type: 
  Country: None (occurrence: None)
  Receive Date: 20110523
  Receipt Date: 20110511
  Transmission Date: 20111010
  Serious: Yes (Disabling, Other)
  Sender: FDA-Public Use
  Company Number: US-ELI_LILLY_AND_COMPANY-US201105003772

PATIENT
  Sex: Female

DRUGS (1)
  1. HUMATROPE [Suspect]
     Indication: GROWTH HORMONE DEFICIENCY
     Dosage: 20 MG, QD
     Route: 065
     Dates: start: 20090101

REACTIONS (3)
  - TIBIA FRACTURE [None]
  - WEIGHT BEARING DIFFICULTY [None]
  - FALL [None]
